FAERS Safety Report 9210658 (Version 1)
Quarter: 2013Q2

REPORT INFORMATION
  Report Type: Spontaneous
  Country: US (occurrence: US)
  Receive Date: 20130404
  Receipt Date: 20130404
  Transmission Date: 20140414
  Serious: No
  Sender: FDA-Public Use
  Company Number: US-009507513-1304USA001679

PATIENT
  Sex: Female
  Weight: 78.91 kg

DRUGS (3)
  1. NEXPLANON [Suspect]
     Indication: CONTRACEPTION
     Dosage: 1 UNK, UNK
     Route: 059
     Dates: start: 20121031
  2. PRILOSEC [Concomitant]
  3. EXCEDRIN (ACETAMINOPHEN (+) ASPIRIN (+) CAFFEINE) [Concomitant]

REACTIONS (3)
  - Implant site pain [Not Recovered/Not Resolved]
  - Implant site discolouration [Not Recovered/Not Resolved]
  - Device breakage [Unknown]
